FAERS Safety Report 23642790 (Version 1)
Quarter: 2024Q1

REPORT INFORMATION
  Report Type: Spontaneous
  Country: CN (occurrence: CN)
  Receive Date: 20240318
  Receipt Date: 20240318
  Transmission Date: 20240410
  Serious: Yes (Hospitalization, Other)
  Sender: FDA-Public Use
  Company Number: CN-PFIZER INC-PV202400034656

PATIENT
  Age: 59 Year
  Sex: Male

DRUGS (3)
  1. METHYLPREDNISOLONE [Suspect]
     Active Substance: METHYLPREDNISOLONE
     Indication: Nephrotic syndrome
     Dosage: 48 MG, DAILY
     Route: 048
  2. METHYLPREDNISOLONE [Suspect]
     Active Substance: METHYLPREDNISOLONE
     Dosage: 16 MG (MAINTENANCE THERAPY)
     Route: 048
  3. CEFTRIAXONE [Concomitant]
     Active Substance: CEFTRIAXONE\CEFTRIAXONE SODIUM
     Indication: Anti-infective therapy
     Dosage: 2 G, 2X/DAY
     Route: 041

REACTIONS (5)
  - Pneumonitis [Unknown]
  - Nocardiosis [Recovering/Resolving]
  - Immunosuppression [Unknown]
  - Brain abscess [Unknown]
  - Sepsis [Unknown]
